FAERS Safety Report 6268185-2 (Version None)
Quarter: 2009Q3

REPORT INFORMATION
  Report Type: 
  Country: None (occurrence: None)
  Receive Date: 20090713
  Receipt Date: 20090713
  Transmission Date: 20100115
  Serious: Yes (Hospitalization)
  Sender: FDA-Public Use
  Company Number: None

PATIENT
  Age: 78 Year
  Sex: Male
  Weight: 89 kg

DRUGS (2)
  1. WARFARIN SODIUM [Suspect]
     Indication: DEEP VEIN THROMBOSIS
     Dosage: PM PO
     Route: 048
     Dates: start: 20090131, end: 20090426
  2. ASPIRIN [Suspect]
     Dosage: 325 MG PO
     Route: 048
     Dates: start: 20090205, end: 20090426

REACTIONS (10)
  - ASTHENIA [None]
  - DECREASED APPETITE [None]
  - DIARRHOEA [None]
  - FATIGUE [None]
  - GASTRIC HAEMORRHAGE [None]
  - GASTROINTESTINAL HAEMORRHAGE [None]
  - HAEMOGLOBIN DECREASED [None]
  - NAUSEA [None]
  - URINARY TRACT INFECTION [None]
  - WEIGHT DECREASED [None]
